FAERS Safety Report 5730377-6 (Version None)
Quarter: 2008Q2

REPORT INFORMATION
  Report Type: 
  Country: None (occurrence: None)
  Receive Date: 20080502
  Receipt Date: 20080423
  Transmission Date: 20081010
  Serious: Yes (Hospitalization)
  Sender: FDA-Public Use
  Company Number: 2007SP003393

PATIENT
  Age: 49 Year
  Sex: Male
  Weight: 71 kg

DRUGS (2)
  1. ESZOPICLONE (ESZOPICLONE) [Suspect]
     Indication: DEPRESSION
     Dosage: 3 MG; HS; ORAL
     Route: 048
     Dates: start: 20070927, end: 20071001
  2. VENLAFAXIINE HCL [Suspect]
     Indication: DEPRESSION
     Dosage: 75 MG; QD; ORAL
     Route: 048
     Dates: start: 20070927, end: 20071001

REACTIONS (9)
  - ANXIETY [None]
  - DECREASED APPETITE [None]
  - DEPRESSION [None]
  - DISEASE RECURRENCE [None]
  - HEADACHE [None]
  - HYPERTENSION [None]
  - SEROTONIN SYNDROME [None]
  - SLEEP DISORDER [None]
  - WEIGHT DECREASED [None]
